FAERS Safety Report 6522012-4 (Version None)
Quarter: 2009Q4

REPORT INFORMATION
  Report Type: 
  Country: None (occurrence: None)
  Receive Date: 20091230
  Receipt Date: 20091216
  Transmission Date: 20100525
  Serious: Yes (Hospitalization)
  Sender: FDA-Public Use
  Company Number: DE-ROCHE-505568

PATIENT
  Sex: Male
  Weight: 86 kg

DRUGS (18)
  1. BEVACIZUMAB [Suspect]
     Dosage: DOSAGE FORM: INFUSION.
     Route: 042
     Dates: start: 20070703, end: 20070704
  2. BEVACIZUMAB [Suspect]
     Route: 042
     Dates: start: 20070814, end: 20070815
  3. BEVACIZUMAB [Suspect]
     Route: 042
     Dates: start: 20070828, end: 20070829
  4. BEVACIZUMAB [Suspect]
     Route: 042
     Dates: start: 20080116, end: 20080117
  5. OXALIPLATIN [Suspect]
     Dosage: DOSAGE FORM: INFUSION.
     Route: 042
     Dates: start: 20070703, end: 20070704
  6. OXALIPLATIN [Suspect]
     Dosage: DOSAGE FORM REPORTED AS INFUSION.
     Route: 042
     Dates: start: 20070814, end: 20070814
  7. OXALIPLATIN [Suspect]
     Route: 042
     Dates: start: 20070828, end: 20070829
  8. FLUOROURACIL [Suspect]
     Dosage: DOSAGE FORM: INFUSION.
     Route: 042
     Dates: start: 20070703, end: 20070704
  9. FLUOROURACIL [Suspect]
     Dosage: DOSAGE FORM REPORTED AS INFUSION.
     Route: 042
     Dates: start: 20070814, end: 20070815
  10. FLUOROURACIL [Suspect]
     Route: 042
     Dates: start: 20070828, end: 20070829
  11. FLUOROURACIL [Suspect]
     Route: 042
     Dates: start: 20080116, end: 20080117
  12. LISINOPRIL [Concomitant]
     Dosage: THERAPY WAS STOPPED ON AN UNSPECIFIED DATE AND RESTARTED ON 15 AUGUST 2007.
     Dates: start: 19990101
  13. ESOMEPRAZOLE SODIUM (NEXIUM) [Concomitant]
     Dates: start: 20070214
  14. ENOXAPARIN SODIUM [Concomitant]
     Dosage: GIVEN 0.4 ML ON 14 AUG 2007, 0.6 ML ON 15 AUG 2007, AND 1.2 ML ON 16 AUG 2007.
     Dates: start: 20070814
  15. CODIPRONT [Concomitant]
     Dates: start: 20070818, end: 20070818
  16. CODICOMPREN [Concomitant]
     Dates: start: 20070819, end: 20070820
  17. STILNOX [Concomitant]
     Dates: start: 20070820, end: 20070820
  18. VERGENTAN [Concomitant]
     Dates: start: 20070815, end: 20070815

REACTIONS (2)
  - INFECTION [None]
  - PYREXIA [None]
